FAERS Safety Report 4292596-8 (Version None)
Quarter: 2004Q1

REPORT INFORMATION
  Report Type: 
  Country: None (occurrence: None)
  Receive Date: 20040126
  Receipt Date: 20031020
  Transmission Date: 20041129
  Serious: No
  Sender: FDA-Public Use
  Company Number: USA031050398

PATIENT
  Age: 74 Year
  Sex: Female

DRUGS (17)
  1. FORTEO [Suspect]
     Indication: OSTEOPOROSIS
     Dosage: 20 UG/DAY
     Dates: start: 20031013, end: 20031014
  2. NEURONTIN [Concomitant]
  3. COMBIVENT [Concomitant]
  4. FLOVENT [Concomitant]
  5. ALBUTEROL [Concomitant]
  6. COZAAR [Concomitant]
  7. IMDUR [Concomitant]
  8. ARTHROTEC [Concomitant]
  9. ASPIRIN [Concomitant]
  10. REGLAN [Concomitant]
  11. ACIPHEX [Concomitant]
  12. ZOCOR [Concomitant]
  13. TRAZADONE (TRAZADONE) [Concomitant]
  14. MIRALAX [Concomitant]
  15. CALTRATE + D [Concomitant]
  16. MULTIVITAMIN [Concomitant]
  17. VITAMIN E [Concomitant]

REACTIONS (1)
  - BRONCHITIS [None]
